FAERS Safety Report 7093514-X (Version None)
Quarter: 2010Q4

REPORT INFORMATION
  Report Type: 
  Country: None (occurrence: None)
  Receive Date: 20101110
  Receipt Date: 20090624
  Transmission Date: 20110411
  Serious: No
  Sender: FDA-Public Use
  Company Number: US-KINGPHARMUSA00001-K200900749

PATIENT
  Age: 43 Year
  Sex: Male

DRUGS (1)
  1. EPIPEN [Suspect]
     Dosage: 0.3 MG, SINGLE
     Dates: start: 20090623, end: 20090623

REACTIONS (1)
  - ACCIDENTAL EXPOSURE [None]
